FAERS Safety Report 5026051-4 (Version None)
Quarter: 2006Q2

REPORT INFORMATION
  Report Type: 
  Country: None (occurrence: None)
  Receive Date: 20060608
  Receipt Date: 20060529
  Transmission Date: 20061013
  Serious: Yes (Other)
  Sender: FDA-Public Use
  Company Number: 2006-05-2117

PATIENT

DRUGS (2)
  1. CELESTAMINE (BETAMETHASONE/DEXCHLORPHENIRAMINE MALEAT TABLETS LIKE CEL [Suspect]
     Dosage: ORAL
     Route: 048
  2. SEDATIVE/HYPNOTIC [Concomitant]

REACTIONS (1)
  - HALLUCINATION [None]
